FAERS Safety Report 5738937-3 (Version None)
Quarter: 2008Q2

REPORT INFORMATION
  Report Type: 
  Country: None (occurrence: None)
  Receive Date: 20080515
  Receipt Date: 20080506
  Transmission Date: 20081010
  Serious: Yes (Other)
  Sender: FDA-Public Use
  Company Number: CA-JNJFOC-20080501347

PATIENT
  Sex: Female

DRUGS (2)
  1. CAELYX [Suspect]
     Indication: OVARIAN CANCER RECURRENT
     Route: 042
  2. VITAMIN B6 [Suspect]
     Indication: OVARIAN CANCER RECURRENT
     Route: 065

REACTIONS (3)
  - HYPERHIDROSIS [None]
  - LYMPHOEDEMA [None]
  - RASH [None]
